FAERS Safety Report 21928572 (Version 1)
Quarter: 2023Q1

REPORT INFORMATION
  Report Type: Spontaneous
  Country: CA (occurrence: CA)
  Receive Date: 20230130
  Receipt Date: 20230130
  Transmission Date: 20230418
  Serious: Yes (Life-Threatening, Other)
  Sender: FDA-Public Use
  Company Number: CA-BAXTER-2023BAX011301

PATIENT
  Age: 6 Year
  Sex: Male

DRUGS (2)
  1. TRAVASOL [Suspect]
     Active Substance: ALANINE\ARGININE\GLYCINE\HISTIDINE\ISOLEUCINE\LEUCINE\LYSINE HYDROCHLORIDE\METHIONINE\PHENYLALANINE\
     Dosage: AT AN UNSPECIFIED DOSE AND FREQUENCY (DOSAGE FORM - SOLUTION INTRAVENOUS)
     Route: 042
  2. SMOFLIPID [Suspect]
     Active Substance: FISH OIL\MEDIUM-CHAIN TRIGLYCERIDES\OLIVE OIL\SOYBEAN OIL
     Dosage: AT AN UNSPECIFIED DOSE AND FREQUENCY, PRODUCT DESCRIPTION - LIPID INJECTABLE EMULSION, MFR STD
     Route: 042

REACTIONS (9)
  - Body temperature fluctuation [Recovered/Resolved]
  - Bradycardia [Recovered/Resolved]
  - Hyperthermia [Recovered/Resolved]
  - Oxygen therapy [Recovered/Resolved]
  - Peripheral coldness [Recovered/Resolved]
  - Tremor [Recovered/Resolved]
  - Dyspnoea [Recovered/Resolved]
  - Vomiting [Recovered/Resolved]
  - Hypertension [Recovered/Resolved]
